FAERS Safety Report 15106177 (Version 2)
Quarter: 2018Q4

REPORT INFORMATION
  Report Type: Spontaneous
  Country: US (occurrence: US)
  Receive Date: 20180704
  Receipt Date: 20181113
  Transmission Date: 20190204
  Serious: Yes (Other)
  Sender: FDA-Public Use
  Company Number: US-ASTRAZENECA-2018SE84972

PATIENT
  Age: 44 Year
  Sex: Male
  Weight: 132.4 kg

DRUGS (35)
  1. NEXIUM [Suspect]
     Active Substance: ESOMEPRAZOLE MAGNESIUM
     Indication: DYSPEPSIA
     Route: 048
     Dates: start: 2012
  2. PANTOPRAZOLE [Suspect]
     Active Substance: PANTOPRAZOLE
     Indication: DYSPEPSIA
     Route: 065
     Dates: start: 20121116
  3. AMLODIPINE BESILATE [Concomitant]
     Active Substance: AMLODIPINE BESYLATE
     Dates: start: 20140701
  4. LIPITOR [Concomitant]
     Active Substance: ATORVASTATIN CALCIUM
     Dates: start: 20130827
  5. GUAIFENESIN. [Concomitant]
     Active Substance: GUAIFENESIN
     Dates: start: 20121101
  6. INSULIN GLARGINE [Concomitant]
     Active Substance: INSULIN GLARGINE
     Dosage: 10 UNIT
     Dates: start: 20121101
  7. NEXIUM [Suspect]
     Active Substance: ESOMEPRAZOLE MAGNESIUM
     Indication: DYSPEPSIA
     Dosage: GENERIC
     Route: 065
     Dates: start: 2015
  8. CRESTOR [Concomitant]
     Active Substance: ROSUVASTATIN CALCIUM
     Indication: ROUTINE HEALTH MAINTENANCE
     Dates: start: 20130813
  9. NORVASC [Concomitant]
     Active Substance: AMLODIPINE BESYLATE
     Dates: start: 20130813
  10. ASPIRIN. [Concomitant]
     Active Substance: ASPIRIN
     Dates: start: 20130827
  11. GABAPENTIN. [Concomitant]
     Active Substance: GABAPENTIN
     Dates: start: 20160207
  12. CLOPIDOGREL [Concomitant]
     Active Substance: CLOPIDOGREL BISULFATE
     Dates: start: 20121101
  13. NITROGLYCERIN. [Concomitant]
     Active Substance: NITROGLYCERIN
     Dates: start: 20121031
  14. CEPHALEXIN. [Concomitant]
     Active Substance: CEPHALEXIN
     Dates: start: 20140919
  15. METOPROLOL SUCCINATE. [Concomitant]
     Active Substance: METOPROLOL SUCCINATE
     Dates: start: 20130813
  16. HEPARIN [Concomitant]
     Active Substance: HEPARIN SODIUM
     Dates: start: 20121031
  17. NEXIUM [Suspect]
     Active Substance: ESOMEPRAZOLE MAGNESIUM
     Indication: DYSPEPSIA
     Route: 048
     Dates: start: 20150615
  18. TOPROL XL [Concomitant]
     Active Substance: METOPROLOL SUCCINATE
     Indication: ROUTINE HEALTH MAINTENANCE
     Dosage: 50 MG
     Dates: start: 20140513
  19. CHANTIX [Concomitant]
     Active Substance: VARENICLINE TARTRATE
     Dosage: 1 MG
     Dates: start: 20140624
  20. GLIMEPIRIDE. [Concomitant]
     Active Substance: GLIMEPIRIDE
     Dates: start: 20121101
  21. MORPHINE [Concomitant]
     Active Substance: MORPHINE
     Dates: start: 20121031
  22. ONDANSETRON [Concomitant]
     Active Substance: ONDANSETRON
     Dates: start: 20121031
  23. NEXIUM [Suspect]
     Active Substance: ESOMEPRAZOLE MAGNESIUM
     Indication: DYSPEPSIA
     Route: 048
     Dates: start: 2012, end: 2016
  24. ZETIA [Concomitant]
     Active Substance: EZETIMIBE
     Indication: ROUTINE HEALTH MAINTENANCE
     Dates: start: 20130813
  25. BRILINTA [Concomitant]
     Active Substance: TICAGRELOR
     Indication: ROUTINE HEALTH MAINTENANCE
     Dates: start: 20130813
  26. CALCITRIOL. [Concomitant]
     Active Substance: CALCITRIOL
     Dates: start: 20140429
  27. GLUCOTROL [Concomitant]
     Active Substance: GLIPIZIDE
     Dates: start: 20130813
  28. ATIVAN [Concomitant]
     Active Substance: LORAZEPAM
     Dates: start: 20121031
  29. NEXIUM [Suspect]
     Active Substance: ESOMEPRAZOLE MAGNESIUM
     Indication: DYSPEPSIA
     Route: 048
     Dates: start: 20130813
  30. LISINOPRIL. [Concomitant]
     Active Substance: LISINOPRIL
     Dates: start: 20121101
  31. LISINOPRIL. [Concomitant]
     Active Substance: LISINOPRIL
     Dates: start: 20130813
  32. GLUCAGON. [Concomitant]
     Active Substance: GLUCAGON
     Dosage: 1 MG AS NEEDED
     Dates: start: 20121031
  33. OXYCODONE/ACETAMINOPHEN [Concomitant]
     Active Substance: ACETAMINOPHEN\OXYCODONE HYDROCHLORIDE
     Dosage: 5-325 MG EVERY 6 HOURS
     Dates: start: 20140922
  34. GLIPIZIDE. [Concomitant]
     Active Substance: GLIPIZIDE
     Indication: ROUTINE HEALTH MAINTENANCE
     Dates: start: 20150709
  35. NICOTINE POLACRILEX [Concomitant]
     Active Substance: NICOTINE
     Dates: start: 20121031

REACTIONS (4)
  - End stage renal disease [Unknown]
  - Chronic kidney disease [Unknown]
  - Renal failure [Not Recovered/Not Resolved]
  - Renal disorder [Unknown]

NARRATIVE: CASE EVENT DATE: 2013
